FAERS Safety Report 23185719 (Version 1)
Quarter: 2023Q4

REPORT INFORMATION
  Report Type: Spontaneous
  Country: US (occurrence: US)
  Receive Date: 20231115
  Receipt Date: 20231115
  Transmission Date: 20240109
  Serious: Yes (Other)
  Sender: FDA-Public Use
  Company Number: US-SA-SAC20231113001067

PATIENT
  Age: 68 Year
  Sex: Female

DRUGS (7)
  1. DUPIXENT [Suspect]
     Active Substance: DUPILUMAB
     Indication: Dermatitis atopic
     Dosage: 300 MG, QOW
     Route: 058
     Dates: end: 202307
  2. DOXYCYCLINE [Concomitant]
     Active Substance: DOXYCYCLINE
     Dosage: UNK
  3. KETOCONAZOLE [Concomitant]
     Active Substance: KETOCONAZOLE
     Dosage: UNK
  4. OPZELURA [Concomitant]
     Active Substance: RUXOLITINIB PHOSPHATE
     Dosage: UNK
  5. IBRANCE [Concomitant]
     Active Substance: PALBOCICLIB
     Dosage: UNK
  6. LETROZOLE [Concomitant]
     Active Substance: LETROZOLE
     Dosage: UNK
  7. PARAFFIN [Concomitant]
     Active Substance: PARAFFIN

REACTIONS (9)
  - Cerebrovascular accident [Unknown]
  - Motor dysfunction [Unknown]
  - Sleep disorder [Unknown]
  - Skin weeping [Unknown]
  - Rash erythematous [Unknown]
  - Pain of skin [Unknown]
  - Skin burning sensation [Unknown]
  - Skin exfoliation [Unknown]
  - Eczema [Unknown]

NARRATIVE: CASE EVENT DATE: 20230101
